FAERS Safety Report 21680567 (Version 5)
Quarter: 2023Q1

REPORT INFORMATION
  Report Type: Spontaneous
  Country: US (occurrence: US)
  Receive Date: 20221205
  Receipt Date: 20230201
  Transmission Date: 20230417
  Serious: No
  Sender: FDA-Public Use
  Company Number: US-BRISTOL-MYERS SQUIBB COMPANY-2022-142711

PATIENT
  Age: 53 Year
  Sex: Male

DRUGS (2)
  1. REVLIMID [Suspect]
     Active Substance: LENALIDOMIDE
     Indication: Plasmacytoma
     Dosage: FREQUENCY: OTHER
     Route: 048
     Dates: start: 202208
  2. REVLIMID [Suspect]
     Active Substance: LENALIDOMIDE
     Dosage: FREQUENCY: OTHER
     Route: 048
     Dates: start: 202210

REACTIONS (6)
  - Peripheral swelling [Recovered/Resolved]
  - Palpitations [Unknown]
  - Hypoaesthesia oral [Unknown]
  - Taste disorder [Unknown]
  - Inappropriate schedule of product administration [Unknown]
  - Off label use [Unknown]

NARRATIVE: CASE EVENT DATE: 20230101
